FAERS Safety Report 22240506 (Version 1)
Quarter: 2023Q2

REPORT INFORMATION
  Report Type: Spontaneous
  Country: US (occurrence: None)
  Receive Date: 20230421
  Receipt Date: 20230421
  Transmission Date: 20230721
  Serious: Yes (unspecified)
  Sender: FDA-Public Use
  Company Number: None

PATIENT
  Age: 67 Year
  Sex: Female
  Weight: 116 kg

DRUGS (1)
  1. CEFEPIME [Suspect]
     Active Substance: CEFEPIME HYDROCHLORIDE
     Indication: Sepsis
     Dosage: OTHER FREQUENCY : EVERY 12 HOURS;?
     Route: 040
     Dates: start: 20230416, end: 20230419

REACTIONS (2)
  - Somnolence [None]
  - Depressed level of consciousness [None]

NARRATIVE: CASE EVENT DATE: 20230419
